FAERS Safety Report 7719387-7 (Version None)
Quarter: 2011Q3

REPORT INFORMATION
  Report Type: 
  Country: None (occurrence: None)
  Receive Date: 20110825
  Receipt Date: 20110809
  Transmission Date: 20111222
  Serious: Yes (Death, Congenital Anomaly, Other)
  Sender: FDA-Public Use
  Company Number: 2011MA011600

PATIENT
  Age: 29 Year
  Sex: Female

DRUGS (1)
  1. ZOLPIDEM TARTRATE [Suspect]
     Indication: INSOMNIA
     Dosage: 800 MG;QD

REACTIONS (5)
  - MATERNAL DRUGS AFFECTING FOETUS [None]
  - CONGENITAL HYDROCEPHALUS [None]
  - NEURAL TUBE DEFECT [None]
  - MENINGOMYELOCELE [None]
  - CAESAREAN SECTION [None]
